FAERS Safety Report 23004825 (Version 4)
Quarter: 2024Q2

REPORT INFORMATION
  Report Type: Spontaneous
  Country: US (occurrence: US)
  Receive Date: 20230929
  Receipt Date: 20240614
  Transmission Date: 20240716
  Serious: Yes (Other)
  Sender: FDA-Public Use
  Company Number: US-BRISTOL-MYERS SQUIBB COMPANY-2023-137097

PATIENT
  Age: 40 Year
  Sex: Male

DRUGS (1)
  1. REVLIMID [Suspect]
     Active Substance: LENALIDOMIDE
     Indication: Plasma cell myeloma
     Dosage: FREQUENCY: DAILY FOR 21 DAYS ON AND 7 DAYS OFF
     Route: 048

REACTIONS (15)
  - Dyspepsia [Unknown]
  - Diarrhoea [Unknown]
  - Nausea [Unknown]
  - Accident [Unknown]
  - Burns first degree [Unknown]
  - Condition aggravated [Unknown]
  - Anxiety [Unknown]
  - Insomnia [Unknown]
  - Abdominal discomfort [Unknown]
  - Abdominal pain upper [Unknown]
  - Pain in extremity [Unknown]
  - Dysuria [Unknown]
  - Blood urine present [Unknown]
  - Product dose omission issue [Unknown]
  - Product availability issue [Unknown]
